FAERS Safety Report 7581246-0 (Version None)
Quarter: 2011Q2

REPORT INFORMATION
  Report Type: 
  Country: None (occurrence: None)
  Receive Date: 20110629
  Receipt Date: 20110620
  Transmission Date: 20111010
  Serious: Yes (Hospitalization)
  Sender: FDA-Public Use
  Company Number: CHPA2011US08247

PATIENT
  Sex: Female
  Weight: 68.027 kg

DRUGS (3)
  1. BENEFIBER W/ WHEAT DEXTRIN [Suspect]
     Indication: NUTRITIONAL SUPPORT
     Dosage: 1 STICK PACK, QD
     Route: 048
     Dates: start: 20110624
  2. BENEFIBER W/ WHEAT DEXTRIN [Suspect]
     Dosage: 1/2 STICK PACK, ONCE
     Route: 048
     Dates: start: 20110623, end: 20110623
  3. BENEFIBER W/ WHEAT DEXTRIN [Suspect]
     Dosage: UNK, UNK
     Route: 048

REACTIONS (8)
  - FAECES DISCOLOURED [None]
  - FAECAL INCONTINENCE [None]
  - GASTROINTESTINAL TRACT IRRITATION [None]
  - ANORECTAL DISCOMFORT [None]
  - DIVERTICULITIS INTESTINAL HAEMORRHAGIC [None]
  - ABDOMINAL PAIN UPPER [None]
  - FLATULENCE [None]
  - DIVERTICULITIS [None]
